FAERS Safety Report 6178579-1 (Version None)
Quarter: 2009Q2

REPORT INFORMATION
  Report Type: 
  Country: None (occurrence: None)
  Receive Date: 20090430
  Receipt Date: 20090423
  Transmission Date: 20091009
  Serious: Yes (Disabling)
  Sender: FDA-Public Use
  Company Number: CERZ-1000596

PATIENT
  Age: 55 Year
  Sex: Female
  Weight: 50 kg

DRUGS (2)
  1. CEREZYME [Suspect]
     Indication: GAUCHER'S DISEASE
     Dosage: INTRAVENOUS
     Route: 042
     Dates: start: 19951223
  2. SODIUM BIPHOSPHATE (SODIUM BIPHOSPHATE MONOBASIC (ANHYDRATE) [Concomitant]

REACTIONS (1)
  - RIB FRACTURE [None]
